FAERS Safety Report 10082074 (Version 1)
Quarter: 2014Q2

REPORT INFORMATION
  Report Type: Spontaneous
  Country: US (occurrence: None)
  Receive Date: 20140414
  Receipt Date: 20140414
  Transmission Date: 20141212
  Serious: No
  Sender: FDA-Public Use
  Company Number: None

PATIENT
  Sex: Male
  Weight: 92.99 kg

DRUGS (9)
  1. AVELOX [Suspect]
     Route: 048
  2. CIPRO [Suspect]
     Route: 048
  3. ASPIRIN [Concomitant]
  4. SIMVASTATIN [Concomitant]
  5. LOSARTAN [Concomitant]
  6. AMBIEN [Concomitant]
  7. CLONAZEPAM [Concomitant]
  8. GABAPENTIN [Concomitant]
  9. VIT B COMPLEX [Concomitant]

REACTIONS (15)
  - Pyrexia [None]
  - Chills [None]
  - Dysuria [None]
  - Hypoaesthesia [None]
  - Urinary retention [None]
  - Paraesthesia [None]
  - Burning sensation [None]
  - Escherichia urinary tract infection [None]
  - Drug resistance [None]
  - Prostatitis [None]
  - Neuropathy peripheral [None]
  - Asthenia [None]
  - Gait disturbance [None]
  - Balance disorder [None]
  - Paresis [None]
